FAERS Safety Report 14505235 (Version 2)
Quarter: 2018Q1

REPORT INFORMATION
  Report Type: Spontaneous
  Country: US (occurrence: US)
  Receive Date: 20180208
  Receipt Date: 20180305
  Transmission Date: 20180509
  Serious: Yes (Death, Other)
  Sender: FDA-Public Use
  Company Number: US-DRREDDYS-USA/USA/18/0096166

PATIENT
  Age: 64 Year
  Sex: Female

DRUGS (1)
  1. GEMCITABINE [Suspect]
     Active Substance: GEMCITABINE\GEMCITABINE HYDROCHLORIDE
     Indication: ADENOCARCINOMA PANCREAS
     Dosage: EVERY 3 WEEKS FOR THREE WEEKS A MONTH
     Route: 042

REACTIONS (2)
  - Thrombotic microangiopathy [Recovering/Resolving]
  - Neoplasm malignant [Fatal]
